FAERS Safety Report 9169650 (Version 6)
Quarter: 2014Q4

REPORT INFORMATION
  Report Type: Spontaneous
  Country: US (occurrence: US)
  Receive Date: 20130318
  Receipt Date: 20141001
  Transmission Date: 20150529
  Serious: Yes (Hospitalization, Disabling, Other)
  Sender: FDA-Public Use
  Company Number: US-009507513-1303USA007591

PATIENT
  Sex: Female
  Weight: 52.15 kg

DRUGS (5)
  1. VITAMIN D [Concomitant]
     Active Substance: CHOLECALCIFEROL
     Dosage: 5000 MG, QD
     Dates: start: 1988
  2. HORMONES (UNSPECIFIED) [Concomitant]
     Active Substance: UNSPECIFIED INGREDIENT
     Dosage: UNK
     Dates: start: 1973
  3. ALENDRONATE SODIUM. [Suspect]
     Active Substance: ALENDRONATE SODIUM
     Indication: OSTEOPOROSIS
     Dosage: 70 MG, QW
     Route: 048
     Dates: start: 20080813, end: 20121016
  4. CALTRATE [Concomitant]
     Active Substance: CALCIUM CARBONATE
     Dosage: 1 DF, QD
     Dates: start: 1988
  5. FOSAMAX [Suspect]
     Active Substance: ALENDRONATE SODIUM
     Indication: OSTEOPOROSIS
     Dosage: 70 MG, QW
     Route: 048
     Dates: start: 2001, end: 20080813

REACTIONS (22)
  - Depression [Unknown]
  - Fall [Unknown]
  - Anxiety [Unknown]
  - Pain [Unknown]
  - Intramedullary rod insertion [Unknown]
  - Liver function test abnormal [Unknown]
  - Back pain [Not Recovered/Not Resolved]
  - Arthralgia [Not Recovered/Not Resolved]
  - Fracture delayed union [Unknown]
  - Spinal osteoarthritis [Unknown]
  - Osteoporosis [Unknown]
  - Arthritis [Unknown]
  - Facet joint syndrome [Unknown]
  - Fibromyalgia [Unknown]
  - Femur fracture [Recovered/Resolved]
  - Blindness transient [Unknown]
  - Hypophosphatasia [Unknown]
  - Low turnover osteopathy [Unknown]
  - Gallbladder disorder [Unknown]
  - Pain [Unknown]
  - Nephrolithiasis [Unknown]
  - Vertebral foraminal stenosis [Unknown]

NARRATIVE: CASE EVENT DATE: 2001
